FAERS Safety Report 8777514 (Version 2)
Quarter: 2012Q4

REPORT INFORMATION
  Report Type: 
  Country: US (occurrence: US)
  Receive Date: 20120907
  Receipt Date: 20121010
  Transmission Date: 20130627
  Serious: Yes (Other)
  Sender: FDA-Public Use
  Company Number: US-ELI_LILLY_AND_COMPANY-US201208008794

PATIENT
  Age: 75 Year
  Sex: Male
  Weight: 80.27 kg

DRUGS (2)
  1. HUMALOG LISPRO [Suspect]
     Indication: TYPE 2 DIABETES MELLITUS
     Dosage: 8 u, qd
     Dates: start: 2011
  2. LANTUS [Concomitant]

REACTIONS (3)
  - Spinal compression fracture [Recovering/Resolving]
  - Fall [Recovered/Resolved]
  - Alcohol poisoning [Recovered/Resolved]
